FAERS Safety Report 9432789 (Version 4)
Quarter: 2013Q4

REPORT INFORMATION
  Report Type: Report from Study
  Country: FR (occurrence: FR)
  Receive Date: 20130731
  Receipt Date: 20131009
  Transmission Date: 20140711
  Serious: Yes (Hospitalization)
  Sender: FDA-Public Use
  Company Number: FR-ROCHE-1246698

PATIENT
  Age: 38 Year
  Sex: Male
  Weight: 80 kg

DRUGS (6)
  1. BEVACIZUMAB [Suspect]
     Indication: NON-SMALL CELL LUNG CANCER
     Dosage: LAST DOSE PRIOR TO SAE 24/JUN/2013, DOSE OF LAST BEVACIZUMAB TAKEN 1200 MG
     Route: 042
     Dates: start: 20130624
  2. CARBOPLATIN [Suspect]
     Indication: NON-SMALL CELL LUNG CANCER
     Dosage: LAST DOSE PRIOR TO SAE 17/JUL/2013, AT DOSE 900MG
     Route: 042
     Dates: start: 20130624
  3. PACLITAXEL [Suspect]
     Indication: NON-SMALL CELL LUNG CANCER
     Dosage: LAST DOSE PRIOR TO SAE 24/JUN/2013, DOSE OF LAST PACLITAXEL 390 MG
     Route: 042
     Dates: start: 20130624
  4. KEPPRA [Concomitant]
     Indication: EPILEPSY
     Route: 048
     Dates: start: 20130328
  5. LIORESAL [Concomitant]
     Indication: EPILEPSY
     Route: 048
     Dates: start: 20130328
  6. GDC-0941 (PI3K INHIBITOR) [Suspect]
     Indication: NON-SMALL CELL LUNG CANCER
     Dosage: LAST DOSE PRIOR TO EVENT 17/JUL/2013
     Route: 048
     Dates: start: 20130624

REACTIONS (2)
  - Dermatitis allergic [Recovered/Resolved]
  - Dermatitis allergic [Recovered/Resolved]
